FAERS Safety Report 5471181-6 (Version None)
Quarter: 2007Q3

REPORT INFORMATION
  Report Type: 
  Country: None (occurrence: None)
  Receive Date: 20070928
  Receipt Date: 20070831
  Transmission Date: 20080115
  Serious: No
  Sender: FDA-Public Use
  Company Number: A0625752A

PATIENT
  Age: 4 Year
  Sex: Female

DRUGS (2)
  1. FLOVENT [Suspect]
     Indication: ASTHMA
     Route: 055
     Dates: start: 20061014
  2. NO CONCURRENT MEDICATION [Concomitant]

REACTIONS (1)
  - NASAL CONGESTION [None]
